FAERS Safety Report 22698032 (Version 2)
Quarter: 2024Q3

REPORT INFORMATION
  Report Type: Report from Study
  Country: US (occurrence: US)
  Receive Date: 20230712
  Receipt Date: 20240911
  Transmission Date: 20241016
  Serious: Yes (Other)
  Sender: TAKEDA
  Company Number: US-TAKEDA-2023TUS014502

PATIENT
  Age: 49 Year
  Sex: Male
  Weight: 91 kg

DRUGS (3)
  1. VEDOLIZUMAB [Suspect]
     Active Substance: VEDOLIZUMAB
     Indication: Crohn^s disease
     Dosage: 300 MILLIGRAM
     Route: 042
     Dates: start: 20230201
  2. VEDOLIZUMAB [Suspect]
     Active Substance: VEDOLIZUMAB
     Indication: Crohn^s disease
     Dosage: 108 MILLIGRAM, Q2WEEKS
     Route: 058
     Dates: start: 20240702
  3. VEDOLIZUMAB [Suspect]
     Active Substance: VEDOLIZUMAB
     Indication: Crohn^s disease
     Dosage: 108 MILLIGRAM, Q2WEEKS
     Route: 058
     Dates: start: 20240702

REACTIONS (9)
  - Nephrolithiasis [Not Recovered/Not Resolved]
  - Ear discomfort [Recovered/Resolved]
  - Muscle spasms [Recovered/Resolved]
  - Frequent bowel movements [Not Recovered/Not Resolved]
  - Diarrhoea [Recovered/Resolved]
  - Blood urine present [Not Recovered/Not Resolved]
  - Defaecation urgency [Unknown]
  - Nasopharyngitis [Not Recovered/Not Resolved]
  - Rash [Not Recovered/Not Resolved]

NARRATIVE: CASE EVENT DATE: 20230202
